FAERS Safety Report 5982561-4 (Version None)
Quarter: 2008Q4

REPORT INFORMATION
  Report Type: 
  Country: None (occurrence: None)
  Receive Date: 20081208
  Receipt Date: 20081126
  Transmission Date: 20090506
  Serious: Yes (Disabling, Other)
  Sender: FDA-Public Use
  Company Number: PHEH2008US07408

PATIENT
  Age: 55 Year
  Sex: Male

DRUGS (9)
  1. ZOMETA [Suspect]
     Indication: METASTASES TO BONE
     Dosage: 4 MG, ONCE/SINGLE
     Route: 042
     Dates: start: 20080730
  2. CISPLATIN [Concomitant]
  3. AVASTIN [Concomitant]
     Indication: NON-SMALL CELL LUNG CANCER
     Dosage: UNK
     Route: 042
     Dates: start: 20080402
  4. EMEND [Concomitant]
  5. HYDROCHLOROTHIAZIDE [Concomitant]
  6. VIAGRA [Concomitant]
  7. ASPIRIN [Concomitant]
  8. CELEBREX [Concomitant]
     Indication: MYALGIA
     Dosage: UNK, QD PRN
     Route: 048
     Dates: start: 20080301
  9. MULTI-VITAMINS [Concomitant]
     Dosage: UNK
     Route: 048

REACTIONS (10)
  - ACUTE PHASE REACTION [None]
  - ARTHRALGIA [None]
  - BLISTER [None]
  - CHILLS [None]
  - ERYTHEMA [None]
  - PAIN IN EXTREMITY [None]
  - PARAESTHESIA [None]
  - PYREXIA [None]
  - RASH PAPULAR [None]
  - SKIN EXFOLIATION [None]
